FAERS Safety Report 5524699-1 (Version None)
Quarter: 2007Q4

REPORT INFORMATION
  Report Type: 
  Country: None (occurrence: None)
  Receive Date: 20071123
  Receipt Date: 20071113
  Transmission Date: 20080405
  Serious: Yes (Other)
  Sender: FDA-Public Use
  Company Number: PHEH2007US14955

PATIENT
  Sex: Female

DRUGS (3)
  1. LOPRESSOR [Suspect]
  2. LISINOPRIL [Suspect]
  3. XANAX [Suspect]

REACTIONS (8)
  - BLADDER DISORDER [None]
  - BLOOD CHOLESTEROL INCREASED [None]
  - BLOOD TRIGLYCERIDES INCREASED [None]
  - DEPRESSION [None]
  - DIABETES MELLITUS [None]
  - OESOPHAGITIS [None]
  - OSTEOARTHRITIS [None]
  - OSTEOPOROSIS [None]
